FAERS Safety Report 5102833-5 (Version None)
Quarter: 2006Q3

REPORT INFORMATION
  Report Type: 
  Country: None (occurrence: None)
  Receive Date: 20060907
  Receipt Date: 20060825
  Transmission Date: 20061208
  Serious: Yes (Congenital Anomaly, Other)
  Sender: FDA-Public Use
  Company Number: GXKR2006IT05347

PATIENT
  Sex: Male

DRUGS (1)
  1. METHIMAZOLE [Suspect]
     Dosage: TRANSPLACENTAL
     Route: 064

REACTIONS (8)
  - ABDOMINAL WALL DISORDER [None]
  - CAESAREAN SECTION [None]
  - DEVELOPMENTAL DELAY [None]
  - DRUG EXPOSURE DURING PREGNANCY [None]
  - EXOMPHALOS [None]
  - MOTOR DYSFUNCTION [None]
  - PREMATURE BABY [None]
  - SKIN DISORDER [None]
